FAERS Safety Report 10266685 (Version 1)
Quarter: 2014Q2

REPORT INFORMATION
  Report Type: Spontaneous
  Country: US (occurrence: US)
  Receive Date: 20140630
  Receipt Date: 20140630
  Transmission Date: 20141212
  Serious: No
  Sender: FDA-Public Use
  Company Number: US-ASTRAZENECA-2014SE45199

PATIENT
  Age: 58 Year
  Sex: Female
  Weight: 49.9 kg

DRUGS (6)
  1. SEROQUEL XR [Suspect]
     Indication: BIPOLAR DISORDER
     Route: 048
     Dates: start: 201401
  2. SINUS PILL OTC UNKNOWN [Concomitant]
     Indication: RHINORRHOEA
  3. WELLBUTRIN [Concomitant]
     Indication: BIPOLAR DISORDER
     Route: 048
     Dates: start: 2009
  4. NEURONTIN [Concomitant]
     Indication: NERVE INJURY
     Route: 048
     Dates: start: 2009
  5. SIMVASTATIN [Concomitant]
     Indication: BLOOD CHOLESTEROL INCREASED
     Dosage: UNKNOWN DAILY
     Route: 048
     Dates: start: 2011
  6. KLONIPIN [Concomitant]
     Indication: NERVOUS SYSTEM DISORDER
     Route: 048
     Dates: start: 2011

REACTIONS (3)
  - Rhinorrhoea [Unknown]
  - Gait disturbance [Unknown]
  - Multiple allergies [Unknown]
